FAERS Safety Report 8487387-8 (Version None)
Quarter: 2012Q2

REPORT INFORMATION
  Report Type: 
  Country: None (occurrence: None)
  Receive Date: 20120628
  Receipt Date: 20120628
  Transmission Date: 20120825
  Serious: Yes (Hospitalization)
  Sender: FDA-Public Use
  Company Number: None

PATIENT
  Age: 50 Year
  Sex: Female
  Weight: 73 kg

DRUGS (11)
  1. LEXAPRO [Concomitant]
  2. FERRIPROX [Suspect]
     Indication: IRON OVERLOAD
     Dosage: 1500 MG TID PO
     Route: 048
     Dates: start: 20120615, end: 20120624
  3. FERRIPROX [Suspect]
     Indication: SICKLE CELL ANAEMIA
     Dosage: 1500 MG TID PO
     Route: 048
     Dates: start: 20120615, end: 20120624
  4. LISINOPRIL [Concomitant]
  5. HYDROXYUREA [Concomitant]
  6. PERCOCET [Concomitant]
  7. COMBIVENT [Concomitant]
  8. PREDNISONE TAB [Concomitant]
  9. TAPENTADOL [Concomitant]
  10. FOSAMAX [Concomitant]
  11. ARAVA [Concomitant]

REACTIONS (3)
  - NAUSEA [None]
  - DEHYDRATION [None]
  - VOMITING [None]
